FAERS Safety Report 17916144 (Version 1)
Quarter: 2020Q2

REPORT INFORMATION
  Report Type: Spontaneous
  Country: US (occurrence: US)
  Receive Date: 20200619
  Receipt Date: 20200619
  Transmission Date: 20200714
  Serious: No
  Sender: FDA-Public Use
  Company Number: US-ASTRAZENECA-2020SE76452

PATIENT
  Age: 747 Month
  Sex: Male

DRUGS (1)
  1. BYDUREON BCISE [Suspect]
     Active Substance: EXENATIDE
     Indication: TYPE 2 DIABETES MELLITUS
     Route: 065

REACTIONS (5)
  - Incorrect dose administered by device [Unknown]
  - Intentional product misuse [Unknown]
  - Injection site mass [Unknown]
  - Device malfunction [Unknown]
  - Overdose [Unknown]

NARRATIVE: CASE EVENT DATE: 202006
